FAERS Safety Report 19508078 (Version 1)
Quarter: 2021Q3

REPORT INFORMATION
  Report Type: Spontaneous
  Country: GB (occurrence: GB)
  Receive Date: 20210708
  Receipt Date: 20210708
  Transmission Date: 20211014
  Serious: Yes (Other)
  Sender: FDA-Public Use
  Company Number: GB-JNJFOC-20180406363

PATIENT

DRUGS (1)
  1. REMICADE [Suspect]
     Active Substance: INFLIXIMAB
     Indication: COLITIS ULCERATIVE
     Dosage: 5MG/KG AT 0, 2, AND 6 AND MAINTENANCE 5 MG/KG EVERY 8 WEEKS THEREAFTER.
     Route: 042

REACTIONS (3)
  - Pulmonary embolism [Unknown]
  - Plasmacytoma [Unknown]
  - Treatment failure [Unknown]
